FAERS Safety Report 10402486 (Version 1)
Quarter: 2014Q3

REPORT INFORMATION
  Report Type: Spontaneous
  Country: FR (occurrence: FR)
  Receive Date: 20140822
  Receipt Date: 20140822
  Transmission Date: 20150326
  Serious: Yes (Other)
  Sender: FDA-Public Use
  Company Number: FR-ACTAVIS-2014-18017

PATIENT
  Age: 55 Year
  Sex: Female

DRUGS (2)
  1. OFLOXACINE (UNKNOWN) [Suspect]
     Active Substance: OFLOXACIN
     Indication: SKIN TEST
     Dosage: UNK
     Route: 003
  2. LEVOFLOXACIN (UNKNOWN) [Suspect]
     Active Substance: LEVOFLOXACIN
     Indication: PROPHYLAXIS
     Dosage: 500 MG, SINGLE
     Route: 048

REACTIONS (2)
  - Anaphylactic reaction [Recovered/Resolved]
  - Drug hypersensitivity [Recovered/Resolved]
